FAERS Safety Report 11350072 (Version 1)
Quarter: 2015Q3

REPORT INFORMATION
  Report Type: Spontaneous
  Country: US (occurrence: None)
  Receive Date: 20150806
  Receipt Date: 20150806
  Transmission Date: 20151125
  Serious: No
  Sender: FDA-Public Use
  Company Number: None

PATIENT
  Age: 62 Year
  Sex: Male
  Weight: 65.77 kg

DRUGS (13)
  1. TAMSULOSIN [Concomitant]
     Active Substance: TAMSULOSIN
  2. PRESERVISTION [Concomitant]
  3. VITAMIN D [Concomitant]
     Active Substance: CHOLECALCIFEROL
  4. GABAPENTIN. [Suspect]
     Active Substance: GABAPENTIN
     Indication: ANXIETY
     Route: 048
     Dates: start: 20150719, end: 20150805
  5. SYNTHROID [Concomitant]
     Active Substance: LEVOTHYROXINE SODIUM
  6. LAMICTAL [Concomitant]
     Active Substance: LAMOTRIGINE
  7. RAMIPRIL. [Concomitant]
     Active Substance: RAMIPRIL
  8. FISH OIL [Concomitant]
     Active Substance: FISH OIL
  9. VYTORIN [Concomitant]
     Active Substance: EZETIMIBE\SIMVASTATIN
  10. ASPIRIN. [Concomitant]
     Active Substance: ASPIRIN
  11. DOCUSATE SODIUM. [Concomitant]
     Active Substance: DOCUSATE SODIUM
  12. GABAPENTIN. [Suspect]
     Active Substance: GABAPENTIN
     Indication: DEPRESSION
     Route: 048
     Dates: start: 20150719, end: 20150805
  13. MVI [Concomitant]
     Active Substance: VITAMINS

REACTIONS (5)
  - Clumsiness [None]
  - Gait disturbance [None]
  - Compulsive lip biting [None]
  - Somnolence [None]
  - Tongue biting [None]

NARRATIVE: CASE EVENT DATE: 20150805
